FAERS Safety Report 4680411-X (Version None)
Quarter: 2005Q2

REPORT INFORMATION
  Report Type: 
  Country: None (occurrence: None)
  Receive Date: 20050601
  Receipt Date: 20050518
  Transmission Date: 20051028
  Serious: Yes (Death, Other)
  Sender: FDA-Public Use
  Company Number: EWC050544017

PATIENT
  Age: 59 Year
  Sex: Male

DRUGS (6)
  1. ALIMTA [Suspect]
     Indication: MESOTHELIOMA
     Dosage: 1000 MG/1 OTHER
     Dates: start: 20050411
  2. CARBOPLATIN [Suspect]
     Indication: MESOTHELIOMA
     Dosage: 400 MG/1 OTHER
     Dates: start: 20050411
  3. OMEPRAZOLE [Concomitant]
  4. FOLIC ACID [Concomitant]
  5. VITAMIN B-12 [Concomitant]
  6. DEXAMETHASONE [Concomitant]

REACTIONS (7)
  - ANOREXIA [None]
  - ASTHENIA [None]
  - DIARRHOEA [None]
  - DISEASE PROGRESSION [None]
  - LEUKOPENIA [None]
  - MELAENA [None]
  - REFUSAL OF TREATMENT BY PATIENT [None]
